FAERS Safety Report 9952095 (Version 1)
Quarter: 2014Q1

REPORT INFORMATION
  Report Type: Report from Study
  Country: US (occurrence: US)
  Receive Date: 20140304
  Receipt Date: 20140304
  Transmission Date: 20141002
  Serious: No
  Sender: FDA-Public Use
  Company Number: US-ABBVIE-13P-163-1071835-00

PATIENT
  Age: 52 Year
  Sex: Male

DRUGS (10)
  1. HUMIRA [Suspect]
     Indication: PSORIATIC ARTHROPATHY
     Dates: start: 20130306
  2. NEXIUM [Concomitant]
     Indication: GASTROOESOPHAGEAL REFLUX DISEASE
  3. ATORVASTATIN [Concomitant]
     Indication: BLOOD CHOLESTEROL
  4. FISH OIL [Concomitant]
     Indication: BLOOD CHOLESTEROL
  5. METOPROLOL [Concomitant]
     Indication: BLOOD PRESSURE
  6. HCTZ [Concomitant]
     Indication: BLOOD PRESSURE
  7. LEVOTHYROXINE [Concomitant]
     Indication: THYROID DISORDER
  8. ASPIRIN [Concomitant]
     Indication: CARDIAC DISORDER
  9. AMITRIPTYLINE [Concomitant]
     Indication: MIGRAINE
  10. CITALOPRAM [Concomitant]
     Indication: ANXIETY

REACTIONS (2)
  - Psoriasis [Not Recovered/Not Resolved]
  - Autoimmune disorder [Not Recovered/Not Resolved]
